FAERS Safety Report 20393312 (Version 1)
Quarter: 2022Q1

REPORT INFORMATION
  Report Type: Report from Study
  Country: US (occurrence: US)
  Receive Date: 20220128
  Receipt Date: 20220128
  Transmission Date: 20220423
  Serious: Yes (Death)
  Sender: FDA-Public Use
  Company Number: US-DAIICHI SANKYO (CHINA) HOLDINGS CO., LTD.-DSU-2022-103037

PATIENT
  Sex: Female

DRUGS (1)
  1. ENHERTU [Suspect]
     Active Substance: FAM-TRASTUZUMAB DERUXTECAN-NXKI
     Indication: Breast cancer female
     Dosage: 338 MG, ONCE EVERY 3 WK
     Route: 042
     Dates: start: 20200417, end: 20201125

REACTIONS (1)
  - Death [Fatal]
